FAERS Safety Report 5584987-X (Version None)
Quarter: 2008Q1

REPORT INFORMATION
  Report Type: 
  Country: None (occurrence: None)
  Receive Date: 20080109
  Receipt Date: 20080104
  Transmission Date: 20080703
  Serious: Yes (Hospitalization, Congenital Anomaly)
  Sender: FDA-Public Use
  Company Number: US-RB-008904-08

PATIENT
  Sex: Male
  Weight: 2.7 kg

DRUGS (3)
  1. SUBUTEX [Suspect]
     Route: 064
     Dates: start: 20070401, end: 20071202
  2. SUBOXONE [Suspect]
     Route: 064
     Dates: start: 20070301, end: 20070401
  3. METHYLDOPA [Concomitant]
     Indication: HYPERTENSION
     Dosage: DOSAGE UNKNOWN
     Route: 064
     Dates: start: 20070101, end: 20071202

REACTIONS (3)
  - DRUG EXPOSURE DURING PREGNANCY [None]
  - POLYDACTYLY [None]
  - TRACHEO-OESOPHAGEAL FISTULA [None]
